FAERS Safety Report 6822885-1 (Version None)
Quarter: 2010Q3

REPORT INFORMATION
  Report Type: 
  Country: None (occurrence: None)
  Receive Date: 20100708
  Receipt Date: 20100623
  Transmission Date: 20110219
  Serious: Yes (Other)
  Sender: FDA-Public Use
  Company Number: US-BAYER-201026138NA

PATIENT
  Age: 24 Year
  Sex: Female

DRUGS (1)
  1. MIRENA [Suspect]
     Indication: CONTRACEPTION
     Route: 015
     Dates: start: 20070501

REACTIONS (6)
  - ABDOMINAL PAIN [None]
  - CHLAMYDIAL PELVIC INFLAMMATORY DISEASE [None]
  - DEVICE DISLOCATION [None]
  - INGUINAL MASS [None]
  - VAGINAL HAEMORRHAGE [None]
  - VAGINAL SWELLING [None]
